FAERS Safety Report 19816179 (Version 7)
Quarter: 2023Q1

REPORT INFORMATION
  Report Type: Spontaneous
  Country: GB (occurrence: GB)
  Receive Date: 20210909
  Receipt Date: 20230321
  Transmission Date: 20230417
  Serious: Yes (Other)
  Sender: FDA-Public Use
  Company Number: GB-TAKEDA-2021TUS048667

PATIENT
  Age: 78 Year
  Sex: Female

DRUGS (2)
  1. ENTYVIO [Suspect]
     Active Substance: VEDOLIZUMAB
     Indication: Crohn^s disease
     Dosage: 300 MILLIGRAM
     Route: 042
  2. AMITRIPTYLINE [Suspect]
     Active Substance: AMITRIPTYLINE
     Indication: Product used for unknown indication
     Dosage: UNK
     Route: 065

REACTIONS (12)
  - Crohn^s disease [Unknown]
  - Diarrhoea [Unknown]
  - Dry mouth [Unknown]
  - Pain [Unknown]
  - Somnolence [Unknown]
  - Anaemia [Unknown]
  - Skin mass [Unknown]
  - Dyspnoea [Unknown]
  - Vomiting [Unknown]
  - Back pain [Unknown]
  - Fatigue [Unknown]
  - Pruritus [Unknown]
